FAERS Safety Report 10564951 (Version 2)
Quarter: 2014Q4

REPORT INFORMATION
  Report Type: Spontaneous
  Country: US (occurrence: US)
  Receive Date: 20141105
  Receipt Date: 20141229
  Transmission Date: 20150529
  Serious: Yes (Other)
  Sender: FDA-Public Use
  Company Number: US-BEH-2014046001

PATIENT
  Sex: Male

DRUGS (1)
  1. ZEMAIRA [Suspect]
     Active Substance: .ALPHA.1-PROTEINASE INHIBITOR HUMAN
     Indication: ALPHA-1 ANTI-TRYPSIN DEFICIENCY
     Dosage: ??-JUN-2014

REACTIONS (5)
  - Pyrexia [Recovered/Resolved]
  - Intestinal polyp [Recovered/Resolved]
  - Malaise [Recovered/Resolved]
  - Liver disorder [Recovered/Resolved]
  - Blood pressure increased [Recovered/Resolved]
